FAERS Safety Report 12548816 (Version 1)
Quarter: 2016Q3

REPORT INFORMATION
  Report Type: Report from Study
  Country: JP (occurrence: JP)
  Receive Date: 20160712
  Receipt Date: 20160712
  Transmission Date: 20161109
  Serious: Yes (Hospitalization)
  Sender: FDA-Public Use
  Company Number: JP-GLAXOSMITHKLINE-JP2016049161

PATIENT
  Age: 50 Year
  Sex: Male
  Weight: 74 kg

DRUGS (23)
  1. DENOTAS [Suspect]
     Active Substance: CALCIUM CARBONATE\CHOLECALCIFEROL\MAGNESIUM CARBONATE
     Indication: VITAMIN SUPPLEMENTATION
     Dosage: 2 DF, QD
     Route: 048
     Dates: start: 20140214
  2. SUMILU [Suspect]
     Active Substance: FELBINAC
     Indication: RHEUMATOID ARTHRITIS
     Dosage: UNK, AS NECESSARY
     Route: 062
     Dates: start: 20160209
  3. METOLATE [Suspect]
     Active Substance: METHOTREXATE
     Indication: RHEUMATOID ARTHRITIS
     Dosage: 6 MG, QWK
     Route: 048
     Dates: start: 20151021
  4. ENALAPRIL [Suspect]
     Active Substance: ENALAPRIL
     Indication: HYPERTENSION
     Dosage: 5 MG, QD
     Route: 048
     Dates: start: 20150715
  5. ZETIA [Suspect]
     Active Substance: EZETIMIBE
     Indication: PROPHYLAXIS
     Dosage: 10 MG, QD
     Route: 048
     Dates: start: 20160109
  6. LOXOPROFEN NA [Suspect]
     Active Substance: LOXOPROFEN SODIUM
     Indication: RHEUMATOID ARTHRITIS
     Dosage: 60 MG, AS NECESSARY
     Route: 048
     Dates: start: 20150915
  7. URSO [Suspect]
     Active Substance: URSODIOL
     Indication: ALANINE AMINOTRANSFERASE INCREASED
  8. PREDNISOLONE. [Suspect]
     Active Substance: PREDNISOLONE
     Indication: RHEUMATOID ARTHRITIS
     Dosage: 2 MG, QD
     Route: 048
     Dates: start: 20130907
  9. DENOTAS [Suspect]
     Active Substance: CALCIUM CARBONATE\CHOLECALCIFEROL\MAGNESIUM CARBONATE
     Indication: MINERAL SUPPLEMENTATION
  10. URSO [Suspect]
     Active Substance: URSODIOL
     Indication: ASPARTATE AMINOTRANSFERASE INCREASED
     Dosage: 300 MG, QD
     Route: 048
     Dates: start: 20150915
  11. FUROZIN [Suspect]
     Active Substance: CARPRONIUM CHLORIDE
     Indication: ALOPECIA AREATA
     Dosage: UNK, BID
     Route: 062
     Dates: start: 20150826
  12. BAYASPIRIN [Suspect]
     Active Substance: ASPIRIN
     Indication: PROPHYLAXIS
     Dosage: 100 MG, QD
     Route: 048
     Dates: start: 20150715
  13. CRESTOR [Suspect]
     Active Substance: ROSUVASTATIN CALCIUM
     Indication: PROPHYLAXIS
     Dosage: 5 MG, QD
     Route: 048
     Dates: start: 20150715
  14. LANSOPRAZOLE. [Suspect]
     Active Substance: LANSOPRAZOLE
     Indication: GASTRITIS PROPHYLAXIS
     Dosage: 15 MG, QD
     Route: 048
     Dates: start: 20160119
  15. NATRIX [Suspect]
     Active Substance: INDAPAMIDE
     Indication: HYPERTENSION
     Dosage: 1 MG, QD
     Route: 048
     Dates: start: 20150317
  16. DENOSUMAB [Suspect]
     Active Substance: DENOSUMAB
     Indication: RHEUMATOID ARTHRITIS
     Dosage: 60 MG, Q3MO
     Route: 058
     Dates: start: 20140307
  17. PRASUGREL HYDROCHLORIDE [Suspect]
     Active Substance: PRASUGREL HYDROCHLORIDE
     Indication: PROPHYLAXIS
     Dosage: 3.75 MG, QD
     Route: 048
     Dates: start: 20150715
  18. FOLIAMIN [Suspect]
     Active Substance: FOLIC ACID
     Indication: PROPHYLAXIS
     Dosage: 5 MG, QWK
     Route: 048
     Dates: start: 20151024
  19. AZULFIDINE [Suspect]
     Active Substance: SULFASALAZINE
     Indication: RHEUMATOID ARTHRITIS
     Dosage: 500 MG, QD
     Route: 048
     Dates: start: 20151016
  20. RIMATIL [Suspect]
     Active Substance: BUCILLAMINE
     Indication: RHEUMATOID ARTHRITIS
     Dosage: 100 MG, QD
     Route: 048
     Dates: start: 20151016
  21. DENOSUMAB [Suspect]
     Active Substance: DENOSUMAB
     Dosage: 60 MG, Q3MO
     Route: 058
     Dates: start: 20150320
  22. REBAMIPIDE [Suspect]
     Active Substance: REBAMIPIDE
     Indication: PROPHYLAXIS
     Dosage: 100 MG, AS NECESSARY
     Route: 048
     Dates: start: 20120824
  23. MICAMLO [Suspect]
     Active Substance: AMLODIPINE BESYLATE\TELMISARTAN
     Indication: HYPERTENSION
     Dosage: 1 DF, QD
     Route: 048
     Dates: start: 20150317

REACTIONS (1)
  - Large intestine polyp [Recovered/Resolved]

NARRATIVE: CASE EVENT DATE: 20160210
